FAERS Safety Report 9858313 (Version 1)
Quarter: 2014Q1

REPORT INFORMATION
  Report Type: Spontaneous
  Country: FR (occurrence: FR)
  Receive Date: 20140131
  Receipt Date: 20140131
  Transmission Date: 20141002
  Serious: Yes (Hospitalization, Other)
  Sender: FDA-Public Use
  Company Number: FR-ELI_LILLY_AND_COMPANY-FR201401007193

PATIENT
  Age: 60 Year
  Sex: Female

DRUGS (1)
  1. GEMZAR [Suspect]
     Indication: PANCREATIC CARCINOMA METASTATIC
     Dosage: 1000 MG/M2, CYCLICAL
     Route: 042
     Dates: start: 20100721, end: 20131118

REACTIONS (2)
  - Confusional state [Recovered/Resolved]
  - Partial seizures [Recovering/Resolving]
